FAERS Safety Report 19303378 (Version 1)
Quarter: 2021Q2

REPORT INFORMATION
  Report Type: Spontaneous
  Country: RU (occurrence: RU)
  Receive Date: 20210525
  Receipt Date: 20210525
  Transmission Date: 20210717
  Serious: Yes (Other)
  Sender: FDA-Public Use
  Company Number: RU-ASTRAZENECA-2021A458081

PATIENT
  Age: 6 Year

DRUGS (7)
  1. URSOSAN [Concomitant]
     Active Substance: URSODIOL
  2. PHOSPHALUGEL [Concomitant]
     Active Substance: ALUMINUM PHOSPHATE
  3. NEXIUM [Suspect]
     Active Substance: ESOMEPRAZOLE MAGNESIUM
     Indication: GASTROOESOPHAGEAL REFLUX DISEASE
     Dosage: 10.0MG UNKNOWN
     Route: 048
  4. TRIMEDAT [Concomitant]
  5. ESPUMISAN [Concomitant]
     Active Substance: DIMETHICONE
  6. BAKSET [Concomitant]
  7. NEXIUM [Suspect]
     Active Substance: ESOMEPRAZOLE MAGNESIUM
     Indication: GASTRITIS
     Dosage: 10.0MG UNKNOWN
     Route: 048

REACTIONS (1)
  - Blood glucose increased [Unknown]
